FAERS Safety Report 17426031 (Version 1)
Quarter: 2020Q1

REPORT INFORMATION
  Report Type: Spontaneous
  Country: US (occurrence: US)
  Receive Date: 20200217
  Receipt Date: 20200217
  Transmission Date: 20200409
  Serious: Yes (Life-Threatening, Hospitalization, Other)
  Sender: FDA-Public Use
  Company Number: US-GLAXOSMITHKLINE-US2020GSK018833

PATIENT
  Age: 14 Year
  Sex: Male
  Weight: 60 kg

DRUGS (2)
  1. ALBUTEROL. [Suspect]
     Active Substance: ALBUTEROL
     Indication: ASTHMA
     Dosage: UNK
  2. HEPARINE SODIUM [Concomitant]
     Active Substance: HEPARIN SODIUM
     Indication: COAGULOPATHY
     Dosage: UNK

REACTIONS (3)
  - Respiratory acidosis [Recovered/Resolved]
  - Supraventricular tachycardia [Recovered/Resolved]
  - Asthma [Recovered/Resolved]
